FAERS Safety Report 7771056-3 (Version None)
Quarter: 2011Q3

REPORT INFORMATION
  Report Type: 
  Country: None (occurrence: None)
  Receive Date: 20110922
  Receipt Date: 20110413
  Transmission Date: 20111222
  Serious: No
  Sender: FDA-Public Use
  Company Number: US-ASTRAZENECA-2011SE21268

PATIENT
  Age: 41 Year
  Sex: Female
  Weight: 81.6 kg

DRUGS (4)
  1. SEROQUEL XR [Suspect]
     Indication: DEPRESSION
     Route: 048
     Dates: start: 20100201
  2. PROZAC [Concomitant]
     Indication: DEPRESSION
  3. KLONOPIN [Concomitant]
     Indication: ANXIETY
  4. VENTOLIN HFA [Concomitant]
     Indication: ASTHMA

REACTIONS (2)
  - SEASONAL ALLERGY [None]
  - DYSPHONIA [None]
